FAERS Safety Report 5958021 (Version 11)
Quarter: 2013Q3

REPORT INFORMATION
  Report Type: Spontaneous
  Country: US (occurrence: US)
  Receive Date: 20060110
  Receipt Date: 20130701
  Transmission Date: 20140515
  Serious: Yes (Hospitalization, Other)
  Sender: FDA-Public Use
  Company Number: US-ROCHE-428836

PATIENT
  Age: 30 Year
  Sex: Female
  Weight: 72.6 kg

DRUGS (30)
  1. ACCUTANE [Suspect]
     Indication: ACNE
     Route: 048
     Dates: start: 20011010, end: 20011226
  2. ACCUTANE [Suspect]
     Route: 048
     Dates: start: 20020110, end: 20020403
  3. AZATHIOPRINE [Suspect]
     Indication: CROHN^S DISEASE
     Route: 065
     Dates: start: 20041227, end: 20050115
  4. DOXYCYCLINE [Concomitant]
     Indication: ACNE
     Route: 048
  5. THROAT LOZENGE (UNK INGREDIENTS) [Concomitant]
     Indication: PHARYNGITIS
     Route: 065
  6. DECONAMINE SR [Concomitant]
     Indication: UPPER RESPIRATORY TRACT INFECTION
     Route: 065
  7. AUGMENTIN [Concomitant]
     Indication: UPPER RESPIRATORY TRACT INFECTION
     Route: 065
  8. HUMIBID [Concomitant]
     Indication: UPPER RESPIRATORY TRACT INFECTION
     Route: 065
  9. FLONASE [Concomitant]
     Indication: RHINITIS ALLERGIC
     Route: 065
  10. ALLEGRA [Concomitant]
     Indication: RHINITIS ALLERGIC
     Route: 065
  11. ZITHROMAX [Concomitant]
     Indication: BRONCHITIS
     Route: 065
  12. ROBITUSSIN PRODUCT NOS [Concomitant]
     Indication: BRONCHITIS
     Route: 065
  13. SUDAFED [Concomitant]
     Indication: BRONCHITIS
     Route: 065
  14. TYLENOL [Concomitant]
     Indication: BRONCHITIS
     Dosage: DOSING REGIMEN EVERY 4-6 HRS PRN.
     Route: 048
  15. LEVOFLOXACIN [Concomitant]
     Indication: PYELONEPHRITIS
     Route: 065
  16. VICODIN [Concomitant]
     Indication: PYELONEPHRITIS
     Route: 065
  17. MOTRIN [Concomitant]
     Indication: PYELONEPHRITIS
     Route: 065
  18. PYRIDIUM [Concomitant]
     Indication: PYELONEPHRITIS
     Route: 065
  19. EFFEXOR [Concomitant]
     Route: 065
  20. KLONOPIN [Concomitant]
     Route: 065
  21. ALESSE [Concomitant]
     Route: 065
  22. PAXIL [Concomitant]
     Indication: DEPRESSION
  23. ROWASA [Concomitant]
  24. CIPRO [Concomitant]
     Indication: PSEUDOMONAS INFECTION
     Route: 048
  25. ERYTHROMYCIN [Concomitant]
     Dosage: FORM STRENGTH=5 MG/GRAM
     Route: 047
  26. KENALOG [Concomitant]
     Dosage: DOSAGE REGIMEN TID PRN.
     Route: 061
  27. LOMOTIL [Concomitant]
     Indication: DIARRHOEA
     Route: 048
  28. DOCUSATE SODIUM [Concomitant]
     Indication: CONSTIPATION
     Route: 048
  29. BACTROBAN [Concomitant]
     Dosage: DOSAGE REGIMEN REPORTED AS 2% GM.
     Route: 061
  30. TRI-LEVLEN [Concomitant]
     Indication: CONTRACEPTION
     Route: 048

REACTIONS (13)
  - Crohn^s disease [Unknown]
  - Renal failure acute [Recovering/Resolving]
  - Tubulointerstitial nephritis [Recovering/Resolving]
  - Inflammatory bowel disease [Unknown]
  - Depression [Unknown]
  - Malignant melanoma [Unknown]
  - Pyelonephritis [Unknown]
  - Generalised anxiety disorder [Unknown]
  - Uveitis [Recovering/Resolving]
  - Headache [Unknown]
  - Pain in extremity [Unknown]
  - Myalgia [Unknown]
  - Muscular weakness [Unknown]
